FAERS Safety Report 9734706 (Version 2)
Quarter: 2013Q4

REPORT INFORMATION
  Report Type: Spontaneous
  Country: IT (occurrence: IT)
  Receive Date: 20131206
  Receipt Date: 20131206
  Transmission Date: 20140711
  Serious: Yes (Hospitalization)
  Sender: FDA-Public Use
  Company Number: IT-RANBAXY-2013RR-75558

PATIENT
  Age: 88 Year
  Sex: Female

DRUGS (2)
  1. LANSOPRAZOLE [Suspect]
     Indication: EPIGASTRIC DISCOMFORT
     Dosage: 30 MG/DAY
     Route: 048
     Dates: start: 20130810, end: 20130820
  2. IBUPROFEN [Suspect]
     Indication: BONE PAIN
     Dosage: 600 MG/DAY
     Route: 048
     Dates: start: 20130810, end: 20130820

REACTIONS (1)
  - Anaemia [Unknown]
